FAERS Safety Report 7779045-X (Version None)
Quarter: 2011Q3

REPORT INFORMATION
  Report Type: 
  Country: None (occurrence: None)
  Receive Date: 20110926
  Receipt Date: 20100615
  Transmission Date: 20111222
  Serious: Yes (Death, Other)
  Sender: FDA-Public Use
  Company Number: US-PURDUE-USA-2010-0044603

PATIENT
  Age: 14 Year
  Sex: Male
  Weight: 86.168 kg

DRUGS (2)
  1. FENTANYL [Suspect]
     Indication: PROCEDURAL PAIN
  2. OXYCODONE HCL [Suspect]
     Indication: PRODUCT USED FOR UNKNOWN INDICATION

REACTIONS (2)
  - PULMONARY EMBOLISM [None]
  - DEATH [None]
